FAERS Safety Report 21751651 (Version 1)
Quarter: 2022Q4

REPORT INFORMATION
  Report Type: Spontaneous
  Country: AU (occurrence: AU)
  Receive Date: 20221220
  Receipt Date: 20221220
  Transmission Date: 20230113
  Serious: Yes (Other)
  Sender: FDA-Public Use
  Company Number: ALC2022AU005715

PATIENT

DRUGS (1)
  1. BSS [Suspect]
     Active Substance: CALCIUM CHLORIDE\MAGNESIUM CHLORIDE\POTASSIUM CHLORIDE\SODIUM ACETATE\SODIUM CHLORIDE\SODIUM CITRATE
     Indication: Postoperative care
     Dosage: UNK
     Route: 065

REACTIONS (2)
  - Toxic anterior segment syndrome [Unknown]
  - Product contamination physical [Unknown]

NARRATIVE: CASE EVENT DATE: 20221018
